FAERS Safety Report 5979001-8 (Version None)
Quarter: 2008Q4

REPORT INFORMATION
  Report Type: 
  Country: None (occurrence: None)
  Receive Date: 20081204
  Receipt Date: 20081125
  Transmission Date: 20090506
  Serious: Yes (Death, Hospitalization)
  Sender: FDA-Public Use
  Company Number: DE-ROCHE-567019

PATIENT
  Age: 77 Year
  Sex: Female
  Weight: 56.6 kg

DRUGS (6)
  1. CAPECITABINE [Suspect]
     Indication: BREAST CANCER
     Route: 048
     Dates: start: 20080417, end: 20080501
  2. CAPECITABINE [Suspect]
     Route: 048
     Dates: start: 20080508, end: 20080521
  3. CAPECITABINE [Suspect]
     Dosage: START DATE NOT CAPTURED DUE TO ILLEGIBLE HANDWRITING.
     Route: 048
     Dates: start: 20080601, end: 20080624
  4. CAPECITABINE [Suspect]
     Dosage: STOP DATE NOT CAPTURED DUE TO ILLEGIBLE HANDWRITING.
     Route: 048
     Dates: start: 20080701, end: 20080701
  5. SOTALOL HCL [Concomitant]
     Route: 048
     Dates: start: 20020101
  6. NOVAMIN [Concomitant]
     Indication: PAIN
     Dosage: DOSAGE REGIMEN: 30 DROPS TAKEN AS NEEDED.
     Route: 048
     Dates: start: 20080501

REACTIONS (5)
  - ARTERIAL OCCLUSIVE DISEASE [None]
  - DEATH [None]
  - DISEASE PROGRESSION [None]
  - DYSPNOEA [None]
  - FEMORAL ARTERY OCCLUSION [None]
